FAERS Safety Report 24911234 (Version 2)
Quarter: 2025Q1

REPORT INFORMATION
  Report Type: Spontaneous
  Country: NL (occurrence: NL)
  Receive Date: 20250131
  Receipt Date: 20250303
  Transmission Date: 20250408
  Serious: Yes (Hospitalization, Other)
  Sender: TEVA
  Company Number: None

PATIENT
  Age: 26 Year
  Sex: Female
  Weight: 75 kg

DRUGS (7)
  1. BUPRENORPHINE [Suspect]
     Active Substance: BUPRENORPHINE
     Indication: Pain
     Dosage: 1 PATCH EVERY 5 DAYS, PLASTER 10UG/HOUR / BRAND NAME NOT SPECIFIED
     Route: 062
     Dates: start: 20190201
  2. METHADONE [Suspect]
     Active Substance: METHADONE HYDROCHLORIDE
     Indication: Pain
     Dosage: 1 TABLET ONCE A DAY, BRAND NAME NOT SPECIFIED
     Route: 048
     Dates: start: 20220201
  3. OXYCODONE [Suspect]
     Active Substance: OXYCODONE
     Indication: Pain
     Dosage: MAXIMUM 1 TABLET 6 TIMES A DAY, BRAND NAME NOT SPECIFIED
     Route: 048
     Dates: start: 20240401
  4. MONTELUKAST [Suspect]
     Active Substance: MONTELUKAST
     Indication: Urticaria
     Dosage: 1 TABLET ONCE A DAY, TABLET OMHULD / BRAND NAME NOT SPECIFIED
     Route: 048
     Dates: start: 20190201
  5. OMALIZUMAB [Suspect]
     Active Substance: OMALIZUMAB
     Indication: Urticaria
     Dosage: 2 INJECTIONS (150MG EACH) PER 4 WEEKS, INJVLST, BRAND NAME NOT SPECIFIED
     Route: 065
     Dates: start: 20240401
  6. MORPHINE SULFATE [Suspect]
     Active Substance: MORPHINE SULFATE
     Indication: Pain
     Dosage: 6 X DAILY 2 ML, DRINK
     Route: 048
     Dates: start: 20240601
  7. LEVOCETIRIZINE [Suspect]
     Active Substance: LEVOCETIRIZINE
     Indication: Urticaria
     Dosage: 1 TABLET 4 TIMES A DAY, BRAND NAME NOT SPECIFIED
     Route: 048
     Dates: start: 20180201

REACTIONS (3)
  - Foetal vascular malperfusion [Unknown]
  - Foetal death [Unknown]
  - Maternal exposure during pregnancy [Unknown]

NARRATIVE: CASE EVENT DATE: 20241119
